FAERS Safety Report 4908571-3 (Version None)
Quarter: 2006Q1

REPORT INFORMATION
  Report Type: 
  Country: None (occurrence: None)
  Receive Date: 20060210
  Receipt Date: 20050831
  Transmission Date: 20060701
  Serious: No
  Sender: FDA-Public Use
  Company Number: US-GLAXOSMITHKLINE-A0572560A

PATIENT
  Age: 42 Year
  Sex: Male

DRUGS (2)
  1. PAXIL CR [Suspect]
     Dosage: 12.5MG PER DAY
     Route: 048
  2. COUMADIN [Concomitant]

REACTIONS (2)
  - BODY TEMPERATURE INCREASED [None]
  - NAUSEA [None]
